FAERS Safety Report 11938545 (Version 2)
Quarter: 2017Q1

REPORT INFORMATION
  Report Type: Spontaneous
  Country: MX (occurrence: MX)
  Receive Date: 20160122
  Receipt Date: 20170110
  Transmission Date: 20170428
  Serious: Yes (Other)
  Sender: FDA-Public Use
  Company Number: MX-SUN PHARMACEUTICAL INDUSTRIES LTD-2016R1-110019

PATIENT
  Age: 70 Year
  Sex: Female

DRUGS (5)
  1. PREDNISONE. [Suspect]
     Active Substance: PREDNISONE
     Indication: PEMPHIGUS
     Dosage: 30 MG, DAILY
     Route: 048
  2. PREDNISONE. [Suspect]
     Active Substance: PREDNISONE
     Dosage: 1 MG/KG
  3. PREDNISONE. [Suspect]
     Active Substance: PREDNISONE
     Dosage: 15 MG, DAILY
  4. BUROW^S SOLUTION [Suspect]
     Active Substance: ALUMINUM ACETATE
     Indication: PEMPHIGUS
     Dosage: UNK
     Route: 061
  5. VIOFORM WITH BETAMETHASONE [Suspect]
     Active Substance: BETAMETHASONE VALERATE\CLIOQUINOL
     Indication: PEMPHIGUS
     Dosage: UNK
     Route: 061

REACTIONS (7)
  - Condition aggravated [Unknown]
  - Gastrointestinal disorder [Recovering/Resolving]
  - Osteoporosis [Recovering/Resolving]
  - Thyroid function test abnormal [Recovering/Resolving]
  - Bone disorder [Recovering/Resolving]
  - Therapeutic response decreased [Unknown]
  - Pemphigus [None]
